FAERS Safety Report 8819782 (Version 1)
Quarter: 2012Q4

REPORT INFORMATION
  Report Type: 
  Country: US (occurrence: US)
  Receive Date: 20121001
  Receipt Date: 20121001
  Transmission Date: 20130627
  Serious: Yes (Other)
  Sender: FDA-Public Use
  Company Number: US-ROCHE-1129838

PATIENT
  Sex: Female

DRUGS (5)
  1. HERCEPTIN [Suspect]
     Indication: BREAST CANCER
     Dosage: loading dose
     Route: 065
     Dates: start: 20011220
  2. HERCEPTIN [Suspect]
     Indication: METASTASES TO LYMPH NODES
     Dosage: maintainence dose
     Route: 065
  3. ADRIAMYCIN [Concomitant]
  4. CYCLOPHOSPHAMIDE [Concomitant]
  5. DIDRONEL [Concomitant]

REACTIONS (5)
  - Multiple sclerosis [Unknown]
  - Decreased appetite [Unknown]
  - Urinary tract infection [Unknown]
  - Vulvovaginal candidiasis [Unknown]
  - Pollakiuria [Unknown]
